FAERS Safety Report 10651934 (Version 1)
Quarter: 2014Q4

REPORT INFORMATION
  Report Type: Spontaneous
  Country: US (occurrence: None)
  Receive Date: 20141211
  Receipt Date: 20141211
  Transmission Date: 20150529
  Serious: No
  Sender: FDA-Public Use
  Company Number: 2656807

PATIENT
  Age: 3 Year
  Sex: Male

DRUGS (10)
  1. ZOVIRAX [Concomitant]
     Active Substance: ACYCLOVIR
  2. CYTARABINE. [Suspect]
     Active Substance: CYTARABINE
     Indication: ACUTE MYELOID LEUKAEMIA
     Dosage: CYCLICAL
     Route: 042
     Dates: start: 20141015, end: 20141021
  3. LASIX [Concomitant]
     Active Substance: FUROSEMIDE
  4. MYCOSTATIN [Concomitant]
     Active Substance: NYSTATIN
  5. RANITIDINE [Concomitant]
     Active Substance: RANITIDINE\RANITIDINE HYDROCHLORIDE
  6. ZYLORIC [Concomitant]
     Active Substance: ALLOPURINOL
  7. TAZOCIN [Concomitant]
     Active Substance: PIPERACILLIN SODIUM\TAZOBACTAM SODIUM
  8. ZAVEDOS [Suspect]
     Active Substance: IDARUBICIN
     Indication: ACUTE MYELOID LEUKAEMIA
     Dosage: CYCLICAL
     Route: 042
     Dates: start: 20141015, end: 20141017
  9. ETOPOSIDE. [Suspect]
     Active Substance: ETOPOSIDE
     Indication: ACUTE MYELOID LEUKAEMIA
     Dosage: CYCLICAL
     Route: 042
     Dates: start: 20141015, end: 20141021
  10. DIFLUCAN [Concomitant]
     Active Substance: FLUCONAZOLE

REACTIONS (3)
  - Haematemesis [None]
  - Mucosal inflammation [None]
  - Mucous membrane disorder [None]

NARRATIVE: CASE EVENT DATE: 20141028
